FAERS Safety Report 19808451 (Version 1)
Quarter: 2021Q3

REPORT INFORMATION
  Report Type: Spontaneous
  Country: US (occurrence: US)
  Receive Date: 20210908
  Receipt Date: 20210908
  Transmission Date: 20211014
  Serious: No
  Sender: FDA-Public Use
  Company Number: None

PATIENT
  Age: 53 Year
  Sex: Female
  Weight: 61.2 kg

DRUGS (5)
  1. ZIRGAN [Suspect]
     Active Substance: GANCICLOVIR
     Indication: EYE INFECTION
     Dosage: ?          QUANTITY:1 DROP(S);OTHER FREQUENCY:5 TIMES DAILY;?
     Route: 047
     Dates: start: 20210901, end: 20210904
  2. DAILY MULTIVITAMIN [Concomitant]
     Active Substance: VITAMINS
  3. VIT D [Concomitant]
     Active Substance: VITAMIN D NOS
  4. PROGESTERONE. [Concomitant]
     Active Substance: PROGESTERONE
  5. ESTROGEL [Concomitant]
     Active Substance: ESTRADIOL

REACTIONS (5)
  - Lacrimation increased [None]
  - Eyelid oedema [None]
  - Ocular discomfort [None]
  - Conjunctival hyperaemia [None]
  - Condition aggravated [None]

NARRATIVE: CASE EVENT DATE: 20210904
